FAERS Safety Report 18490706 (Version 1)
Quarter: 2020Q4

REPORT INFORMATION
  Report Type: Spontaneous
  Country: IT (occurrence: IT)
  Receive Date: 20201111
  Receipt Date: 20201111
  Transmission Date: 20210114
  Serious: Yes (Other)
  Sender: FDA-Public Use
  Company Number: IT-JUBILANT PHARMA LTD-2020IT000866

PATIENT

DRUGS (1)
  1. SODIUM IODIDE I-131. [Suspect]
     Active Substance: SODIUM IODIDE I-131
     Indication: BASEDOW^S DISEASE
     Dosage: 600 MBQ, SINGLE DOSE

REACTIONS (1)
  - Optic neuropathy [Recovering/Resolving]
